FAERS Safety Report 14746183 (Version 1)
Quarter: 2018Q2

REPORT INFORMATION
  Report Type: Spontaneous
  Country: US (occurrence: US)
  Receive Date: 20180405
  Receipt Date: 20180405
  Transmission Date: 20180711
  Serious: Yes (Hospitalization)
  Sender: FDA-Public Use
  Company Number: None

PATIENT
  Age: 69 Year
  Sex: Male
  Weight: 92.49 kg

DRUGS (1)
  1. VANCOMYCIN [Suspect]
     Active Substance: VANCOMYCIN
     Indication: OSTEOMYELITIS
     Route: 042
     Dates: start: 20171225, end: 20180111

REACTIONS (6)
  - Erythema [None]
  - Osteomyelitis [None]
  - Neutropenia [None]
  - Pain in extremity [None]
  - Rash [None]
  - Blister [None]

NARRATIVE: CASE EVENT DATE: 20180116
